FAERS Safety Report 12356722 (Version 1)
Quarter: 2016Q2

REPORT INFORMATION
  Report Type: Spontaneous
  Country: US (occurrence: US)
  Receive Date: 20160511
  Receipt Date: 20160511
  Transmission Date: 20160815
  Serious: Yes (Other)
  Sender: FDA-Public Use
  Company Number: US-GLAXOSMITHKLINE-US2016065390

PATIENT
  Sex: Male

DRUGS (2)
  1. PREVACID [Suspect]
     Active Substance: LANSOPRAZOLE
     Indication: OESOPHAGEAL HAEMORRHAGE
  2. PREVACID [Suspect]
     Active Substance: LANSOPRAZOLE
     Indication: GASTRIC HAEMORRHAGE
     Dosage: 3 DF, QD

REACTIONS (6)
  - Drug dependence [Unknown]
  - Intentional product use issue [Unknown]
  - Extra dose administered [Unknown]
  - Off label use [Unknown]
  - Therapeutic response unexpected [Unknown]
  - Incorrect drug administration duration [Unknown]
